FAERS Safety Report 13414645 (Version 2)
Quarter: 2017Q2

REPORT INFORMATION
  Report Type: Spontaneous
  Country: DE (occurrence: DE)
  Receive Date: 20170406
  Receipt Date: 20170613
  Transmission Date: 20170830
  Serious: Yes (Hospitalization)
  Sender: FDA-Public Use
  Company Number: DE-SA-2017SA055217

PATIENT
  Age: 53 Year
  Sex: Female

DRUGS (3)
  1. FLUORETTEN [Concomitant]
     Route: 048
     Dates: start: 20161011
  2. CEFASEL [Concomitant]
     Route: 048
     Dates: start: 20160415
  3. LEMTRADA [Suspect]
     Active Substance: ALEMTUZUMAB
     Indication: MULTIPLE SCLEROSIS
     Route: 041
     Dates: start: 20160411, end: 20160415

REACTIONS (1)
  - Malignant melanoma [Not Recovered/Not Resolved]

NARRATIVE: CASE EVENT DATE: 20170227
